FAERS Safety Report 6454679-3 (Version None)
Quarter: 2009Q4

REPORT INFORMATION
  Report Type: 
  Country: None (occurrence: None)
  Receive Date: 20091118
  Receipt Date: 20091107
  Transmission Date: 20100525
  Serious: Yes (Other)
  Sender: FDA-Public Use
  Company Number: 2009AP004580

PATIENT
  Age: 57 Year
  Sex: Female

DRUGS (11)
  1. TRAMADOL HCL [Suspect]
     Dosage: 300 MG; 6XD
  2. AMPHETAMINE SULFATE [Concomitant]
  3. BARBITURATES (BARBITURATES) [Concomitant]
  4. TRAZODONE HCL [Concomitant]
  5. BUPRENORPHINE (BUPRENORPHINE) [Concomitant]
  6. NALOXONE [Concomitant]
  7. BENZODIAZEPRINE DERIATIVES (BENZODIAZEPINE DERIATIVES) [Concomitant]
  8. PENTAZOCINE LACTATE [Concomitant]
  9. MEPERIDINE HCL [Concomitant]
  10. HYDROCODONE (HYDROCODONE) [Concomitant]
  11. OXYCODONE HCL [Concomitant]

REACTIONS (18)
  - ANXIETY [None]
  - DEPRESSION [None]
  - DRUG ABUSE [None]
  - DRUG DEPENDENCE [None]
  - DRUG SCREEN POSITIVE [None]
  - DRUG TOLERANCE [None]
  - DRUG WITHDRAWAL SYNDROME [None]
  - HEADACHE [None]
  - HYPERHIDROSIS [None]
  - INSOMNIA [None]
  - LOGORRHOEA [None]
  - MUSCLE TWITCHING [None]
  - MYOCLONUS [None]
  - OPIATES POSITIVE [None]
  - PAIN [None]
  - RHINORRHOEA [None]
  - THINKING ABNORMAL [None]
  - URINE AMPHETAMINE POSITIVE [None]
